FAERS Safety Report 5581009-1 (Version None)
Quarter: 2007Q4

REPORT INFORMATION
  Report Type: 
  Country: None (occurrence: None)
  Receive Date: 20071228
  Receipt Date: 20071213
  Transmission Date: 20080405
  Serious: Yes (Hospitalization)
  Sender: FDA-Public Use
  Company Number: PAR_01819_2007

PATIENT
  Age: 69 Year
  Sex: Male

DRUGS (3)
  1. IBUPROFEN [Suspect]
     Indication: DRUG USE FOR UNKNOWN INDICATION
     Dosage: DF, ORAL
     Route: 048
     Dates: start: 20061017, end: 20061022
  2. ADIRO/ASA 100 MG [Suspect]
     Indication: DRUG USE FOR UNKNOWN INDICATION
     Dosage: 100 MG ONE  YEAR; ORAL
     Route: 048
     Dates: start: 20061001, end: 20061022
  3. PLAVIX [Suspect]
     Indication: DRUG USE FOR UNKNOWN INDICATION
     Dosage: 75 MG, ONE YEAR; ORAL
     Route: 048
     Dates: start: 20061001

REACTIONS (1)
  - GASTRITIS EROSIVE [None]
